FAERS Safety Report 4500611-9 (Version None)
Quarter: 2004Q4

REPORT INFORMATION
  Report Type: 
  Country: None (occurrence: None)
  Receive Date: 20041115
  Receipt Date: 20041103
  Transmission Date: 20050328
  Serious: Yes (Hospitalization)
  Sender: FDA-Public Use
  Company Number: US-JNJFOC-20041101594

PATIENT
  Age: 38 Year
  Sex: Female
  Weight: 72.58 kg

DRUGS (8)
  1. TOPAMAX [Suspect]
     Route: 049
  2. GABITRIL [Suspect]
     Route: 065
     Dates: start: 20040929, end: 20040929
  3. NORCO [Concomitant]
  4. NORCO [Concomitant]
  5. VALIUM [Concomitant]
  6. DURAGESIC [Concomitant]
     Indication: DRUG USE FOR UNKNOWN INDICATION
     Route: 062
  7. EFFEXOR [Concomitant]
  8. PHENERGAN [Concomitant]

REACTIONS (6)
  - ACCIDENTAL OVERDOSE [None]
  - COMA [None]
  - CONVULSION [None]
  - ENCEPHALOPATHY [None]
  - MEDICATION ERROR [None]
  - METABOLIC ENCEPHALOPATHY [None]
